FAERS Safety Report 8504638-1 (Version None)
Quarter: 2012Q3

REPORT INFORMATION
  Report Type: 
  Country: None (occurrence: None)
  Receive Date: 20120711
  Receipt Date: 20120626
  Transmission Date: 20120928
  Serious: Yes (Hospitalization)
  Sender: FDA-Public Use
  Company Number: DE-ROCHE-1082221

PATIENT
  Sex: Male
  Weight: 111 kg

DRUGS (2)
  1. HERCEPTIN [Suspect]
     Indication: OESOPHAGEAL CANCER METASTATIC
     Route: 042
     Dates: start: 20120328
  2. HERCEPTIN [Suspect]
     Route: 042
     Dates: end: 20120516

REACTIONS (4)
  - OEDEMA PERIPHERAL [None]
  - WAIST CIRCUMFERENCE INCREASED [None]
  - ANAEMIA OF MALIGNANT DISEASE [None]
  - SCROTAL OEDEMA [None]
